FAERS Safety Report 8001176-X (Version None)
Quarter: 2011Q4

REPORT INFORMATION
  Report Type: 
  Country: None (occurrence: None)
  Receive Date: 20111219
  Receipt Date: 20111201
  Transmission Date: 20120403
  Serious: Yes (Hospitalization)
  Sender: FDA-Public Use
  Company Number: 2011SP057423

PATIENT
  Age: 57 Year
  Sex: Female
  Weight: 70.4 kg

DRUGS (12)
  1. DEPLIN [Concomitant]
  2. VALTREX [Concomitant]
  3. REBETOL [Suspect]
     Indication: HEPATITIS C
     Dosage: 2 DF;QAM;PO
     Route: 048
     Dates: start: 20110920
  4. IBUPROFEN [Concomitant]
  5. PEGINTERFERON ALFA-2B [Suspect]
     Indication: HEPATITIS C
     Dosage: 4 DF;TID;PO
     Route: 048
     Dates: start: 20111020
  6. WELLBUTRIN [Concomitant]
  7. LYSINE [Concomitant]
  8. PEG-INTRON [Suspect]
     Indication: HEPATITIS C
     Dosage: 0.4 ML;QW;SC
     Route: 058
     Dates: start: 20110920
  9. BLINDED MK-5172 [Suspect]
     Indication: HEPATITIS C
  10. EFFEXOR [Concomitant]
  11. LORATADINE [Concomitant]
  12. VITAMIN B COMPLEX CAP [Concomitant]

REACTIONS (4)
  - TREMOR [None]
  - ASTHENIA [None]
  - VOMITING [None]
  - DEHYDRATION [None]
